FAERS Safety Report 6689326-9 (Version None)
Quarter: 2010Q2

REPORT INFORMATION
  Report Type: 
  Country: None (occurrence: None)
  Receive Date: 20100416
  Receipt Date: 20100402
  Transmission Date: 20101027
  Serious: Yes (Hospitalization)
  Sender: FDA-Public Use
  Company Number: 2010SP019607

PATIENT
  Age: 48 Year
  Sex: Male
  Weight: 81 kg

DRUGS (8)
  1. PEG-INTRON [Suspect]
     Indication: HEPATITIS C
     Dosage: 120 MCG; SC
     Route: 058
     Dates: start: 20100107
  2. REBETOL [Suspect]
     Indication: HEPATITIS C
     Dosage: 1000 MG; PO
     Route: 048
     Dates: start: 20100107
  3. REMICADE [Suspect]
     Indication: HEPATITIS C
     Dosage: 406.5 MG; IV
     Route: 042
     Dates: start: 20100107
  4. PROMETHAZINE [Concomitant]
  5. FLEXERIL [Concomitant]
  6. PRILOSEC [Concomitant]
  7. TRAZODONE HCL [Concomitant]
  8. ETODOLAC [Concomitant]

REACTIONS (12)
  - BLOOD CHLORIDE INCREASED [None]
  - BLOOD CREATINE INCREASED [None]
  - BLOOD SODIUM INCREASED [None]
  - BLOOD UREA INCREASED [None]
  - BLOOD URIC ACID INCREASED [None]
  - DECREASED APPETITE [None]
  - DEHYDRATION [None]
  - FLUID INTAKE REDUCED [None]
  - HYPERKALAEMIA [None]
  - HYPOPHAGIA [None]
  - PAIN [None]
  - RENAL IMPAIRMENT [None]
